FAERS Safety Report 17661164 (Version 3)
Quarter: 2020Q2

REPORT INFORMATION
  Report Type: Spontaneous
  Country: IT (occurrence: IT)
  Receive Date: 20200413
  Receipt Date: 20200512
  Transmission Date: 20200713
  Serious: Yes (Life-Threatening, Hospitalization, Other)
  Sender: FDA-Public Use
  Company Number: IT-ACCORD-178401

PATIENT
  Age: 5 Year
  Sex: Female

DRUGS (2)
  1. TEMOZOLOMIDE. [Suspect]
     Active Substance: TEMOZOLOMIDE
     Indication: NEUROBLASTOMA
     Dosage: 5-DAY?COURSE OF CHEMOTHERAPY EVERY 3 WEEKS FOR 18 MONTHS
     Dates: start: 201607, end: 201801
  2. IRINOTECAN [Suspect]
     Active Substance: IRINOTECAN
     Indication: NEUROBLASTOMA
     Dosage: 5-DAY?COURSE OF CHEMOTHERAPY EVERY 3 WEEKS FOR 18 MONTHS
     Dates: start: 201607, end: 201801

REACTIONS (5)
  - Device related infection [Recovered/Resolved]
  - Off label use [Unknown]
  - Staphylococcal infection [Recovered/Resolved]
  - Bone marrow failure [Unknown]
  - Fungaemia [Unknown]

NARRATIVE: CASE EVENT DATE: 201803
